FAERS Safety Report 5669892-2 (Version None)
Quarter: 2008Q1

REPORT INFORMATION
  Report Type: 
  Country: None (occurrence: None)
  Receive Date: 20080314
  Receipt Date: 20080314
  Transmission Date: 20080703
  Serious: Yes (Other)
  Sender: FDA-Public Use
  Company Number: None

PATIENT
  Sex: Male
  Weight: 181.4388 kg

DRUGS (1)
  1. OXYCODONE TABLET [Suspect]
     Indication: PAIN
     Dosage: 80MG PO
     Route: 048
     Dates: start: 20080305

REACTIONS (1)
  - NAUSEA [None]
